FAERS Safety Report 5284353-0 (Version None)
Quarter: 2007Q2

REPORT INFORMATION
  Report Type: 
  Country: None (occurrence: None)
  Receive Date: 20070403
  Receipt Date: 20070321
  Transmission Date: 20071010
  Serious: Yes (Other)
  Sender: FDA-Public Use
  Company Number: PHNR2007AU00888

PATIENT
  Age: 60 Year
  Sex: Female

DRUGS (1)
  1. ESTRADERM [Suspect]
     Indication: HORMONE REPLACEMENT THERAPY
     Dosage: UNK, UNK
     Route: 062

REACTIONS (1)
  - KNEE OPERATION [None]
